FAERS Safety Report 6588549-7 (Version None)
Quarter: 2010Q1

REPORT INFORMATION
  Report Type: 
  Country: None (occurrence: None)
  Receive Date: 20100218
  Receipt Date: 20091119
  Transmission Date: 20100710
  Serious: No
  Sender: FDA-Public Use
  Company Number: US-ALLERGAN-0915797US

PATIENT
  Sex: Female

DRUGS (1)
  1. BOTOX [Suspect]
     Indication: MYOFASCIAL PAIN SYNDROME
     Dosage: 100 UNITS, SINGLE
     Route: 065
     Dates: start: 20090501, end: 20090501

REACTIONS (1)
  - JOINT DISLOCATION [None]
